FAERS Safety Report 4981053-9 (Version None)
Quarter: 2006Q2

REPORT INFORMATION
  Report Type: 
  Country: None (occurrence: None)
  Receive Date: 20060418
  Receipt Date: 20060331
  Transmission Date: 20061013
  Serious: Yes (Death)
  Sender: FDA-Public Use
  Company Number: US200604000491

PATIENT

DRUGS (1)
  1. ZYPREXA [Suspect]
     Route: 048

REACTIONS (1)
  - DEATH [None]
